FAERS Safety Report 5240264-8 (Version None)
Quarter: 2007Q1

REPORT INFORMATION
  Report Type: 
  Country: None (occurrence: None)
  Receive Date: 20070219
  Receipt Date: 20070213
  Transmission Date: 20070707
  Serious: Yes (Death)
  Sender: FDA-Public Use
  Company Number: HU-ELI_LILLY_AND_COMPANY-HU200612000796

PATIENT
  Age: 61 Year
  Sex: Male

DRUGS (5)
  1. ZYPREXA [Suspect]
     Indication: BIPOLAR DISORDER
     Dosage: 20 MG, DAILY (1/D) IN EVENING
     Route: 048
     Dates: start: 20061108
  2. CLOZAPINE [Concomitant]
     Indication: BIPOLAR DISORDER
     Dosage: 25 MG, UNK
     Route: 048
  3. SEDUXEN [Concomitant]
     Indication: ANXIETY
     Dosage: 5 MG, UNK
     Route: 048
  4. LITHIUM CARBONATE [Concomitant]
     Indication: BIPOLAR DISORDER
     Dosage: 500 MG, UNK
     Route: 048
  5. TEGRETOL [Concomitant]
     Indication: BIPOLAR DISORDER
     Dosage: 200 MG, UNK
     Route: 048

REACTIONS (1)
  - ELECTROCUTION [None]
